FAERS Safety Report 8048410-8 (Version None)
Quarter: 2012Q1

REPORT INFORMATION
  Report Type: 
  Country: None (occurrence: None)
  Receive Date: 20120117
  Receipt Date: 20120111
  Transmission Date: 20120608
  Serious: No
  Sender: FDA-Public Use
  Company Number: US-PFIZER INC-2012009413

PATIENT

DRUGS (6)
  1. PROMETHAZINE HYDROCHLORIDE [Suspect]
     Dosage: UNK
  2. ERYTHROMYCIN [Suspect]
     Dosage: UNK
  3. BENZATHINE PENICILLIN G [Suspect]
     Dosage: UNK
  4. COREG [Suspect]
     Dosage: UNK
  5. HYDROCHLOROTHIAZIDE [Suspect]
     Dosage: UNK
  6. DICYLOMINE HCL/ETHYLMORPHINE HCL [Suspect]
     Dosage: UNK

REACTIONS (1)
  - DRUG HYPERSENSITIVITY [None]
